FAERS Safety Report 7451090-3 (Version None)
Quarter: 2011Q2

REPORT INFORMATION
  Report Type: 
  Country: None (occurrence: None)
  Receive Date: 20110429
  Receipt Date: 20110429
  Transmission Date: 20111010
  Serious: Yes (Hospitalization)
  Sender: FDA-Public Use
  Company Number: None

PATIENT
  Age: 74 Year
  Sex: Male
  Weight: 129.3 kg

DRUGS (11)
  1. FLOMAX [Concomitant]
  2. ASPIRIN [Suspect]
     Indication: ATRIAL FIBRILLATION
     Dosage: 81MG DAILY PO CHRONIC
     Route: 048
  3. CENTRUM SILVER [Concomitant]
  4. FISH OIL [Concomitant]
  5. CRANBERRY [Concomitant]
  6. THYROID TAB [Concomitant]
  7. LASIX [Concomitant]
  8. ACETAMINOPHEN [Concomitant]
  9. POTASSIUM CHLORIDE [Concomitant]
  10. COUMADIN [Suspect]
     Indication: ATRIAL FIBRILLATION
     Dosage: 5MG DAILY PO CHRONIC
     Route: 048
  11. VIT D3 [Concomitant]

REACTIONS (3)
  - HAEMORRHAGIC ARTERIOVENOUS MALFORMATION [None]
  - SMALL INTESTINAL HAEMORRHAGE [None]
  - COAGULOPATHY [None]
